FAERS Safety Report 20618108 (Version 2)
Quarter: 2022Q2

REPORT INFORMATION
  Report Type: Spontaneous
  Country: US (occurrence: US)
  Receive Date: 20220321
  Receipt Date: 20220414
  Transmission Date: 20220721
  Serious: No
  Sender: FDA-Public Use
  Company Number: US-PFIZER INC-202200418204

PATIENT
  Sex: Female

DRUGS (1)
  1. LYRICA [Suspect]
     Active Substance: PREGABALIN
     Indication: Pain
     Dosage: 75 MG, AS NEEDED

REACTIONS (5)
  - Off label use [Unknown]
  - Mood altered [Unknown]
  - Illness [Unknown]
  - Abnormal behaviour [Unknown]
  - Abdominal pain upper [Unknown]
